FAERS Safety Report 4475727-6 (Version None)
Quarter: 2004Q3

REPORT INFORMATION
  Report Type: 
  Country: None (occurrence: None)
  Receive Date: 20040923
  Receipt Date: 20040623
  Transmission Date: 20050211
  Serious: No
  Sender: FDA-Public Use
  Company Number: USA040670899

PATIENT
  Age: 75 Year
  Sex: Female
  Weight: 90 kg

DRUGS (7)
  1. FORTEO [Suspect]
     Indication: BONE DISORDER
     Dosage: 20 UG/1 DAY
     Dates: start: 20040301
  2. LASIX [Concomitant]
  3. SYNTHROID [Concomitant]
  4. FLURAZEPAM [Concomitant]
  5. ROBAXIN [Concomitant]
  6. CELEBREX [Concomitant]
  7. HYDROCODONE [Concomitant]

REACTIONS (4)
  - FALL [None]
  - PAIN [None]
  - PARAESTHESIA [None]
  - SPINAL FRACTURE [None]
